FAERS Safety Report 15170777 (Version 1)
Quarter: 2018Q4

REPORT INFORMATION
  Report Type: Spontaneous
  Country: US (occurrence: US)
  Receive Date: 20180720
  Receipt Date: 20180720
  Transmission Date: 20190204
  Serious: No
  Sender: FDA-Public Use
  Company Number: US-TEVA-2017-US-827217

PATIENT
  Age: 23 Year
  Sex: Female

DRUGS (1)
  1. OMEPRCAP [Suspect]
     Active Substance: OMEPRAZOLE
     Indication: GASTROOESOPHAGEAL REFLUX DISEASE
     Dates: start: 2009

REACTIONS (3)
  - Yellow skin [Unknown]
  - Fall [Unknown]
  - Product substitution issue [Unknown]
